FAERS Safety Report 4801752-9 (Version None)
Quarter: 2005Q4

REPORT INFORMATION
  Report Type: 
  Country: None (occurrence: None)
  Receive Date: 20051011
  Receipt Date: 20050929
  Transmission Date: 20060501
  Serious: Yes (Death)
  Sender: FDA-Public Use
  Company Number: US-2005-020363

PATIENT
  Age: 47 Year
  Sex: Female

DRUGS (1)
  1. BETASERON(INTEFERON BETA-1B) [Suspect]
     Indication: RELAPSING-REMITTING MULTIPLE SCLEROSIS
     Dosage: SUBCUTANEOUS
     Route: 058
     Dates: start: 20050907, end: 20050929

REACTIONS (1)
  - CONVULSION [None]
